FAERS Safety Report 9291448 (Version 6)
Quarter: 2015Q2

REPORT INFORMATION
  Report Type: Spontaneous
  Country: US (occurrence: US)
  Receive Date: 20130515
  Receipt Date: 20150409
  Transmission Date: 20150821
  Serious: Yes (Hospitalization, Disabling, Other)
  Sender: FDA-Public Use
  Company Number: US-009507513-1305USA009439

PATIENT
  Sex: Male
  Weight: 87.53 kg

DRUGS (3)
  1. GLUCOPHAGE [Concomitant]
     Active Substance: METFORMIN HYDROCHLORIDE
     Indication: DIABETES MELLITUS
     Dosage: UNK
     Dates: start: 1995
  2. AMARYL [Concomitant]
     Active Substance: GLIMEPIRIDE
     Indication: DIABETES MELLITUS
     Dosage: UNK
     Dates: start: 1995
  3. PROPECIA [Suspect]
     Active Substance: FINASTERIDE
     Indication: ALOPECIA
     Dosage: 1 MG, QD
     Route: 048
     Dates: start: 20050918, end: 20071129

REACTIONS (10)
  - Benign prostatic hyperplasia [Unknown]
  - Penis injury [Unknown]
  - Erectile dysfunction [Not Recovered/Not Resolved]
  - Hormone level abnormal [Unknown]
  - Sexual dysfunction [Unknown]
  - Carpal tunnel syndrome [Recovered/Resolved]
  - Penile size reduced [Unknown]
  - Mental disorder [Unknown]
  - Coronary artery bypass [Not Recovered/Not Resolved]
  - Brain injury [Unknown]

NARRATIVE: CASE EVENT DATE: 200602
